FAERS Safety Report 8449450-7 (Version None)
Quarter: 2012Q2

REPORT INFORMATION
  Report Type: 
  Country: None (occurrence: None)
  Receive Date: 20120619
  Receipt Date: 20120611
  Transmission Date: 20120825
  Serious: Yes (Other)
  Sender: FDA-Public Use
  Company Number: GR-ALLERGAN-1208158US

PATIENT
  Age: 36 Year
  Sex: Female

DRUGS (1)
  1. BOTULINUM TOXIN TYPE A [Suspect]
     Indication: SKIN WRINKLING
     Dosage: UNK UNITS
     Route: 030
     Dates: start: 20120501, end: 20120501

REACTIONS (6)
  - PRURITUS [None]
  - HYPERSENSITIVITY [None]
  - EYE SWELLING [None]
  - BURNING SENSATION [None]
  - ERYTHEMA [None]
  - EYE HAEMORRHAGE [None]
